FAERS Safety Report 9563488 (Version 1)
Quarter: 2013Q3

REPORT INFORMATION
  Report Type: Spontaneous
  Country: IT (occurrence: None)
  Receive Date: 20130926
  Receipt Date: 20130926
  Transmission Date: 20140515
  Serious: Yes (Hospitalization)
  Sender: FDA-Public Use
  Company Number: AUR-APL-2013-06400

PATIENT
  Age: 67 Year
  Sex: Female

DRUGS (9)
  1. METFORMIN [Suspect]
     Indication: DIABETES MELLITUS
     Route: 048
     Dates: start: 20130527, end: 20130601
  2. NOVORAPID [Suspect]
     Indication: DIABETES MELLITUS
     Dosage: 24 IU ({100), 1X/DAY, SUBCUTANEOUS
     Route: 058
  3. LANTUS (INSULIN GLARGINE) [Concomitant]
  4. SERETIDE DISCUS (SERETIDE) [Concomitant]
  5. SPIRIVA (TIOTROPIUM BROMIDE) [Concomitant]
  6. LYRICA (PREGABALIN) [Concomitant]
  7. XENAZINA (TETRABENAZINE) [Concomitant]
  8. RAMIPRIL (RAMIPRIL) [Concomitant]
  9. LETROZOLE (LETROZOLE) [Concomitant]

REACTIONS (2)
  - Hypoglycaemia [None]
  - Medication error [None]
